FAERS Safety Report 20931714 (Version 1)
Quarter: 2022Q2

REPORT INFORMATION
  Report Type: Spontaneous
  Country: US (occurrence: None)
  Receive Date: 20220607
  Receipt Date: 20220607
  Transmission Date: 20220721
  Serious: Yes (Hospitalization)
  Sender: FDA-Public Use
  Company Number: None

PATIENT
  Age: 44 Year
  Sex: Female
  Weight: 135 kg

DRUGS (2)
  1. IMITREX [Suspect]
     Active Substance: SUMATRIPTAN SUCCINATE
     Indication: Headache
     Dosage: OTHER QUANTITY : 1 INJECTION(S);?
     Route: 058
     Dates: start: 20220606, end: 20220606
  2. Iron supplement Vitamin D [Concomitant]

REACTIONS (17)
  - Chest discomfort [None]
  - Dizziness [None]
  - Hypoaesthesia [None]
  - Nasal discomfort [None]
  - Feeling abnormal [None]
  - Crying [None]
  - Speech disorder [None]
  - Hypoaesthesia [None]
  - Paraesthesia [None]
  - Movement disorder [None]
  - Depressed level of consciousness [None]
  - Memory impairment [None]
  - Hyperventilation [None]
  - Anxiety [None]
  - Tremor [None]
  - Heart rate abnormal [None]
  - Headache [None]

NARRATIVE: CASE EVENT DATE: 20220606
